FAERS Safety Report 7776812-3 (Version None)
Quarter: 2011Q3

REPORT INFORMATION
  Report Type: 
  Country: None (occurrence: None)
  Receive Date: 20110926
  Receipt Date: 20110902
  Transmission Date: 20111222
  Serious: Yes (Hospitalization, Other)
  Sender: FDA-Public Use
  Company Number: US-BAYER-2011-055492

PATIENT
  Age: 43 Year
  Sex: Male

DRUGS (26)
  1. TRASYLOL [Suspect]
     Indication: VENTRICULAR ASSIST DEVICE INSERTION
     Dosage: PUMP PRIME APROTININ 2,000,000 KU
     Route: 042
     Dates: start: 20040606, end: 20040606
  2. DOPAMINE HCL [Concomitant]
     Dosage: 61.23MG
  3. COUMADIN [Concomitant]
     Dosage: 5MG
     Dates: start: 20030101
  4. MILRINONE [Concomitant]
     Dosage: 6.675MG
  5. SPIRONOLACTONE [Concomitant]
     Dosage: 25MG
     Dates: start: 20030101
  6. LANOXIN [Concomitant]
     Dosage: 0.125
     Dates: start: 20030101
  7. DOBUTAMINE HCL [Concomitant]
     Dosage: 169.4MG
     Dates: start: 20040511
  8. VITAMIN K TAB [Concomitant]
     Dosage: 1 MG
     Route: 042
     Dates: start: 20040513
  9. MANNITOL [Concomitant]
     Dosage: 25 GRAMS
  10. TRASYLOL [Suspect]
     Indication: MEDICAL DEVICE REMOVAL
     Dosage: LOADING DOSE: 150ML FOLLOWED BY INFUSION, FOR TOTAL 380ML APROTININ
     Dates: start: 20040606, end: 20040606
  11. DEMADEX [Concomitant]
     Dosage: 20 MG, QD
     Route: 048
     Dates: start: 20030425
  12. TORSEMIDE [Concomitant]
     Dosage: 100 MG, BID
     Route: 048
     Dates: start: 20040513
  13. HEPARIN [Concomitant]
     Indication: THROMBOSIS PROPHYLAXIS
     Dosage: UNK
     Route: 042
     Dates: start: 20040514
  14. PLASMA [Concomitant]
     Dosage: 1000ML
  15. PLATELETS [Concomitant]
     Dosage: 500ML
  16. LASIX [Concomitant]
     Dosage: 40 MG, QD
     Route: 048
     Dates: start: 20030101
  17. AMIODARONE HCL [Concomitant]
     Dosage: 200MG
     Dates: start: 20030101
  18. PROTONIX [Concomitant]
     Dosage: 40 MG, QD
     Route: 048
     Dates: start: 20040427
  19. DOBUTAMINE HCL [Concomitant]
     Dosage: 4MCG/KG/MINUTE
     Route: 042
     Dates: start: 20040511
  20. RED BLOOD CELLS [Concomitant]
     Dosage: 600ML
  21. DOPAMINE HCL [Concomitant]
     Dosage: 2 [MCG/KG/MIN]
  22. ACETYLSALICYLIC ACID SRT [Concomitant]
     Dosage: 81 MG, QD
     Route: 048
     Dates: start: 20040513
  23. PROTAMINE [Concomitant]
     Dosage: 200MG
  24. ACCUPRIL [Concomitant]
     Dosage: 10MG BID INCREASED TO 20MG BID
     Route: 048
     Dates: start: 20030109
  25. HEPARIN [Concomitant]
     Dosage: 31,000 UNITS
  26. VASOPRESSIN [Concomitant]
     Dosage: 8.902IU

REACTIONS (9)
  - STRESS [None]
  - FEAR [None]
  - RENAL INJURY [None]
  - RENAL FAILURE [None]
  - EMOTIONAL DISORDER [None]
  - PAIN [None]
  - ANXIETY [None]
  - UNEVALUABLE EVENT [None]
  - RENAL IMPAIRMENT [None]
